FAERS Safety Report 5908634-X (Version None)
Quarter: 2008Q3

REPORT INFORMATION
  Report Type: 
  Country: None (occurrence: None)
  Receive Date: 20080929
  Receipt Date: 20080923
  Transmission Date: 20090109
  Serious: Yes (Death, Hospitalization)
  Sender: FDA-Public Use
  Company Number: 2008SP018222

PATIENT
  Age: 25 Year
  Sex: Male
  Weight: 65.6355 kg

DRUGS (5)
  1. TEMODAR [Suspect]
     Indication: GLIOBLASTOMA MULTIFORME
     Dosage: 140 MG; PO
     Route: 048
     Dates: start: 20080513
  2. DECADRON [Concomitant]
  3. DILANTIN [Concomitant]
  4. PROTONIX [Concomitant]
  5. LORTAB [Concomitant]

REACTIONS (7)
  - DRUG LEVEL INCREASED [None]
  - GAZE PALSY [None]
  - GLIOBLASTOMA MULTIFORME [None]
  - HEMIPARESIS [None]
  - HYPOPHAGIA [None]
  - MALIGNANT NEOPLASM PROGRESSION [None]
  - SOMNOLENCE [None]
